FAERS Safety Report 5879056-5 (Version None)
Quarter: 2008Q3

REPORT INFORMATION
  Report Type: 
  Country: None (occurrence: None)
  Receive Date: 20080912
  Receipt Date: 20080903
  Transmission Date: 20090109
  Serious: Yes (Hospitalization)
  Sender: FDA-Public Use
  Company Number: GB-NOVOPROD-279078

PATIENT
  Age: 62 Year
  Sex: Female

DRUGS (5)
  1. NOVOLOG MIX 70/30 [Suspect]
     Indication: DRUG USE FOR UNKNOWN INDICATION
     Dates: start: 20080601
  2. ATORVASTATIN [Concomitant]
     Route: 048
  3. GABAPENTIN [Concomitant]
     Route: 048
  4. METFORMIN [Concomitant]
     Route: 048
  5. THYROXINE [Concomitant]
     Route: 048

REACTIONS (3)
  - OPTIC DISC DISORDER [None]
  - PAPILLOEDEMA [None]
  - VISION BLURRED [None]
